FAERS Safety Report 8920740 (Version 1)
Quarter: 2012Q4

REPORT INFORMATION
  Report Type: 
  Country: FR (occurrence: FR)
  Receive Date: 20121121
  Receipt Date: 20121121
  Transmission Date: 20130627
  Serious: Yes (Hospitalization)
  Sender: FDA-Public Use
  Company Number: FR-ROCHE-1154680

PATIENT
  Sex: Male

DRUGS (5)
  1. MABTHERA [Suspect]
     Indication: ENCEPHALITIS
     Route: 042
     Dates: start: 20120921
  2. MABTHERA [Suspect]
     Route: 042
     Dates: start: 20120928
  3. SOLU-MEDROL [Suspect]
     Indication: ENCEPHALITIS
     Route: 042
     Dates: start: 20120811, end: 20120827
  4. OCTAGAM [Suspect]
     Indication: ENCEPHALITIS
     Route: 042
     Dates: start: 20120811, end: 20120816
  5. OCTAGAM [Suspect]
     Route: 042
     Dates: start: 20120827, end: 20120903

REACTIONS (1)
  - Prostatitis [Not Recovered/Not Resolved]
